FAERS Safety Report 20423466 (Version 1)
Quarter: 2022Q1

REPORT INFORMATION
  Report Type: Spontaneous
  Country: US (occurrence: US)
  Receive Date: 20220203
  Receipt Date: 20220203
  Transmission Date: 20220423
  Serious: No
  Sender: FDA-Public Use
  Company Number: US-PERRIGO-21US005721

PATIENT
  Sex: Female

DRUGS (2)
  1. IBUPROFEN [Suspect]
     Active Substance: IBUPROFEN
     Indication: Off label use
     Dosage: UNKNOWN, SINGLE
     Route: 048
     Dates: start: 202104, end: 202104
  2. IBUPROFEN [Suspect]
     Active Substance: IBUPROFEN
     Indication: Off label use
     Dosage: UNKNOWN, SINGLE
     Route: 048
     Dates: start: 202104, end: 202104

REACTIONS (3)
  - Throat irritation [Unknown]
  - Oral discomfort [Unknown]
  - Off label use [Recovered/Resolved]

NARRATIVE: CASE EVENT DATE: 20210401
